FAERS Safety Report 5309165-0 (Version None)
Quarter: 2007Q2

REPORT INFORMATION
  Report Type: 
  Country: None (occurrence: None)
  Receive Date: 20070423
  Receipt Date: 20070405
  Transmission Date: 20071010
  Serious: Yes (Other)
  Sender: FDA-Public Use
  Company Number: 2007RR-06774

PATIENT
  Age: 70 Year
  Sex: Male

DRUGS (11)
  1. FUROSEMIDE [Suspect]
  2. INSULIN [Concomitant]
  3. AMIODARONE HCL [Concomitant]
  4. DIGOXIN [Concomitant]
  5. LOSARTAN POSTASSIUM [Concomitant]
  6. METOPROLOL TARTRATE [Concomitant]
  7. LANSOPRAZOLE [Concomitant]
  8. ZOLPIDEM [Concomitant]
  9. FERROUS SULPHATE (IRON) [Concomitant]
  10. CEPHALEXIN [Concomitant]
  11. BUMETANIDE [Concomitant]

REACTIONS (2)
  - CELLULITIS [None]
  - PEMPHIGOID [None]
